FAERS Safety Report 11162482 (Version 2)
Quarter: 2016Q2

REPORT INFORMATION
  Report Type: Spontaneous
  Country: US (occurrence: US)
  Receive Date: 20150604
  Receipt Date: 20160524
  Transmission Date: 20160815
  Serious: Yes (Other)
  Sender: FDA-Public Use
  Company Number: US-SA-2015SA046266

PATIENT
  Age: 71 Year
  Sex: Male
  Weight: 173 kg

DRUGS (20)
  1. ZAROXOLYN [Concomitant]
     Active Substance: METOLAZONE
     Dosage: 2 5 MG BY MOUTH DAILY MONDAYS AND THURSDAYS
     Route: 048
  2. DILTIAZEM [Concomitant]
     Active Substance: DILTIAZEM
     Route: 048
  3. EFFEXOR XR [Concomitant]
     Active Substance: VENLAFAXINE HYDROCHLORIDE
     Route: 048
  4. NEURONTIN [Concomitant]
     Active Substance: GABAPENTIN
     Route: 048
  5. LANTUS [Suspect]
     Active Substance: INSULIN GLARGINE
     Indication: TYPE 2 DIABETES MELLITUS
     Dosage: DOSE: 70 AM/PM
     Route: 065
     Dates: start: 2014
  6. LASIX [Concomitant]
     Active Substance: FUROSEMIDE
     Route: 048
  7. VITAMIN B12 [Concomitant]
     Active Substance: CYANOCOBALAMIN
     Route: 048
  8. LANTUS [Suspect]
     Active Substance: INSULIN GLARGINE
     Indication: TYPE 2 DIABETES MELLITUS
     Dosage: DOSE: 70 AM/PM
     Route: 065
     Dates: end: 2013
  9. TYLENOL [Concomitant]
     Active Substance: ACETAMINOPHEN
     Dosage: DOSE: TAKE 650 MG BY MOUTH EVERY 4 (FOUR) HOURS AS NEEDED
     Route: 048
  10. ALBUTEROL. [Concomitant]
     Active Substance: ALBUTEROL
     Dosage: DOSE: INHALE 2 PUFFS INTO THE LUNGS EVERY 4 (FOUR) HOURS AS NEEDED DOSE:2 PUFF(S)
  11. HUMALOG [Concomitant]
     Active Substance: INSULIN LISPRO
     Dosage: DOSE:50 UNIT(S)
     Route: 058
  12. COLACE [Concomitant]
     Active Substance: DOCUSATE SODIUM
     Route: 048
  13. MIRAPEX [Concomitant]
     Active Substance: PRAMIPEXOLE DIHYDROCHLORIDE
     Route: 048
  14. ASPIRIN. [Concomitant]
     Active Substance: ASPIRIN
     Route: 048
  15. FERROUS SULFATE. [Concomitant]
     Active Substance: FERROUS SULFATE
     Route: 048
  16. LOPID [Concomitant]
     Active Substance: GEMFIBROZIL
     Route: 048
  17. ATORVASTATIN [Concomitant]
     Active Substance: ATORVASTATIN
     Route: 048
  18. LISINOPRIL. [Concomitant]
     Active Substance: LISINOPRIL
     Route: 048
  19. MAGNESIUM OXIDE. [Concomitant]
     Active Substance: MAGNESIUM OXIDE
     Route: 048
  20. TOPROL XL [Concomitant]
     Active Substance: METOPROLOL SUCCINATE
     Route: 048

REACTIONS (4)
  - Drug administration error [Unknown]
  - Cataract [Unknown]
  - Visual impairment [Not Recovered/Not Resolved]
  - Condition aggravated [Not Recovered/Not Resolved]

NARRATIVE: CASE EVENT DATE: 2014
